FAERS Safety Report 17696418 (Version 1)
Quarter: 2020Q2

REPORT INFORMATION
  Report Type: Report from Study
  Country: US (occurrence: US)
  Receive Date: 20200423
  Receipt Date: 20200423
  Transmission Date: 20200714
  Serious: Yes (Hospitalization)
  Sender: FDA-Public Use
  Company Number: US-TAIHO ONCOLOGY  INC-EU-2020-01327

PATIENT
  Sex: Female

DRUGS (9)
  1. CARVEDILOL. [Concomitant]
     Active Substance: CARVEDILOL
  2. LONSURF [Suspect]
     Active Substance: TIPIRACIL HYDROCHLORIDE\TRIFLURIDINE
     Indication: COLON CANCER
     Dosage: CYCLE UNKNOWN
     Route: 048
     Dates: start: 20200215
  3. ALPRAZOLAM. [Concomitant]
     Active Substance: ALPRAZOLAM
  4. NIFEDIPINE. [Concomitant]
     Active Substance: NIFEDIPINE
  5. LANSOPRAZOLE. [Concomitant]
     Active Substance: LANSOPRAZOLE
  6. BUPROPION. [Concomitant]
     Active Substance: BUPROPION
  7. XARELTO [Concomitant]
     Active Substance: RIVAROXABAN
  8. METOPROLOL. [Concomitant]
     Active Substance: METOPROLOL
  9. TERAZOSIN [Concomitant]
     Active Substance: TERAZOSIN HYDROCHLORIDE

REACTIONS (2)
  - Renal disorder [Not Recovered/Not Resolved]
  - Product dose omission [Not Recovered/Not Resolved]
